FAERS Safety Report 11696960 (Version 4)
Quarter: 2016Q4

REPORT INFORMATION
  Report Type: Spontaneous
  Country: US (occurrence: US)
  Receive Date: 20151104
  Receipt Date: 20161214
  Transmission Date: 20170206
  Serious: Yes (Other)
  Sender: FDA-Public Use
  Company Number: US-BAYER-2015-452795

PATIENT
  Age: 50 Year
  Sex: Female
  Weight: 99.77 kg

DRUGS (9)
  1. AMPICILLIN [Concomitant]
     Active Substance: AMPICILLIN
     Indication: INFLUENZA
     Dosage: UNK
  2. AVELOX [Suspect]
     Active Substance: MOXIFLOXACIN HYDROCHLORIDE
     Dosage: 400 MG, UNK
     Dates: start: 20120417
  3. LEVOTHYROXINE. [Concomitant]
     Active Substance: LEVOTHYROXINE
     Indication: HYPOTHYROIDISM
     Dosage: 25 ?G, QD
  4. NORCO [Concomitant]
     Active Substance: ACETAMINOPHEN\HYDROCODONE BITARTRATE
     Dosage: UNK
  5. SYNTHROID [Concomitant]
     Active Substance: LEVOTHYROXINE SODIUM
  6. BENZONATATE. [Concomitant]
     Active Substance: BENZONATATE
  7. PROMETHAZINE [Concomitant]
     Active Substance: PROMETHAZINE\PROMETHAZINE HYDROCHLORIDE
  8. AMOXICILLIN. [Concomitant]
     Active Substance: AMOXICILLIN
     Dosage: UNK
  9. CITALOPRAM HYDROBROMIDE. [Concomitant]
     Active Substance: CITALOPRAM HYDROBROMIDE

REACTIONS (21)
  - Headache [None]
  - Injury [None]
  - Cough [None]
  - Neuropathy peripheral [None]
  - Cholelithiasis [None]
  - Pain [None]
  - Quality of life decreased [None]
  - Musculoskeletal pain [None]
  - Vomiting [None]
  - Hypoaesthesia [None]
  - Neuropathy peripheral [Not Recovered/Not Resolved]
  - Musculoskeletal disorder [None]
  - Neuropathy peripheral [None]
  - Abdominal pain [None]
  - Cholecystitis [None]
  - Pyrexia [None]
  - Peripheral nerve injury [Not Recovered/Not Resolved]
  - Emotional distress [Not Recovered/Not Resolved]
  - Depression [None]
  - Palpitations [None]
  - Nausea [None]

NARRATIVE: CASE EVENT DATE: 201204
